FAERS Safety Report 14209232 (Version 1)
Quarter: 2017Q4

REPORT INFORMATION
  Report Type: Spontaneous
  Country: US (occurrence: US)
  Receive Date: 20171121
  Receipt Date: 20171121
  Transmission Date: 20180321
  Serious: Yes (Other)
  Sender: FDA-Public Use
  Company Number: US-BRAINTREE LABORATORIES-170651

PATIENT
  Age: 51 Year
  Sex: Male
  Weight: 88.9 kg

DRUGS (1)
  1. SUPREP BOWEL PREP [Suspect]
     Active Substance: MAGNESIUM SULFATE\POTASSIUM SULFATE\SODIUM SULFATE
     Indication: COLONOSCOPY
     Dosage: 1 X 6 OZ. BOTTLE
     Route: 048
     Dates: start: 20171029, end: 20171029

REACTIONS (2)
  - Abdominal pain [None]
  - Haemorrhoids thrombosed [None]

NARRATIVE: CASE EVENT DATE: 20171029
